FAERS Safety Report 8874856 (Version 1)
Quarter: 2012Q4

REPORT INFORMATION
  Report Type: 
  Country: US (occurrence: US)
  Receive Date: 20121026
  Receipt Date: 20121026
  Transmission Date: 20130627
  Serious: No
  Sender: FDA-Public Use
  Company Number: US-AMGEN-USASP2012042504

PATIENT
  Sex: Female
  Weight: 69.84 kg

DRUGS (10)
  1. ENBREL [Suspect]
     Indication: PRODUCT USED FOR UNKNOWN INDICATION
     Dosage: 50 mg, qwk
     Route: 058
     Dates: start: 201202
  2. CYMBALTA [Concomitant]
     Dosage: 30 mg, UNK
  3. PLAQUENIL                          /00072602/ [Concomitant]
     Dosage: 200 mg, UNK
  4. LYRICA [Concomitant]
     Dosage: 300 mg, UNK
  5. NASONEX [Concomitant]
     Dosage: UNK (50MCG/AC)
  6. ALLEGRA [Concomitant]
     Dosage: 180 mg, UNK
  7. IMITREX                            /01044801/ [Concomitant]
     Dosage: 25 mg, UNK
  8. TRAZODONE [Concomitant]
     Dosage: 150 mg, UNK
  9. METHOTREXATE [Concomitant]
     Dosage: 25 mg/ml, UNK
  10. MULTI [Concomitant]
     Dosage: UNK

REACTIONS (1)
  - Drug ineffective [Unknown]
